FAERS Safety Report 4766813-1 (Version None)
Quarter: 2005Q3

REPORT INFORMATION
  Report Type: 
  Country: None (occurrence: None)
  Receive Date: 20050912
  Receipt Date: 20050527
  Transmission Date: 20060218
  Serious: Yes (Hospitalization, Disabling)
  Sender: FDA-Public Use
  Company Number: US-MERCK-0505USA03431

PATIENT
  Age: 41 Year
  Sex: Male
  Weight: 86 kg

DRUGS (22)
  1. DARVOCET-N 100 [Concomitant]
     Indication: BACK PAIN
     Route: 065
     Dates: start: 20000501
  2. AMITRIPTYLINE HYDROCHLORIDE [Concomitant]
     Route: 065
  3. ZITHROMAX [Concomitant]
     Route: 065
  4. CILOXAN [Concomitant]
     Route: 001
  5. ULTRAM [Concomitant]
     Indication: BACK PAIN
     Route: 065
     Dates: start: 20000501
  6. ACETAMINOPHEN AND CODEINE PHOSPHATE [Concomitant]
     Indication: OSTEOARTHRITIS
     Route: 065
     Dates: start: 20000701
  7. ACETAMINOPHEN AND CODEINE PHOSPHATE [Concomitant]
     Indication: BACK PAIN
     Route: 065
     Dates: start: 20000701
  8. STROVITE [Concomitant]
     Indication: VITAMIN SUPPLEMENTATION
     Route: 065
  9. VICODIN [Concomitant]
     Indication: OSTEOARTHRITIS
     Route: 065
     Dates: start: 20000601, end: 20040301
  10. VICODIN [Concomitant]
     Indication: BACK PAIN
     Route: 065
     Dates: start: 20000601, end: 20040301
  11. MOTRIN [Concomitant]
     Indication: OSTEOARTHRITIS
     Route: 065
     Dates: start: 20000201
  12. MOTRIN [Concomitant]
     Indication: BACK PAIN
     Route: 065
     Dates: start: 20000201
  13. DARVOCET-N 100 [Concomitant]
     Indication: OSTEOARTHRITIS
     Route: 065
     Dates: start: 20000501
  14. VIOXX [Suspect]
     Indication: OSTEOARTHRITIS
     Route: 048
     Dates: start: 20000405, end: 20000601
  15. VIOXX [Suspect]
     Route: 048
     Dates: start: 20000601, end: 20040930
  16. VIOXX [Suspect]
     Indication: PROSTATITIS
     Route: 048
     Dates: start: 20000405, end: 20000601
  17. VIOXX [Suspect]
     Route: 048
     Dates: start: 20000601, end: 20040930
  18. OXYCONTIN [Concomitant]
     Indication: OSTEOARTHRITIS
     Route: 065
     Dates: start: 20000901
  19. OXYCONTIN [Concomitant]
     Indication: BACK PAIN
     Route: 065
     Dates: start: 20000901
  20. LEVAQUIN [Concomitant]
     Indication: OSTEOARTHRITIS
     Route: 065
     Dates: start: 20000405
  21. LEVAQUIN [Concomitant]
     Indication: BACK PAIN
     Route: 065
     Dates: start: 20000405
  22. ULTRAM [Concomitant]
     Indication: OSTEOARTHRITIS
     Route: 065
     Dates: start: 20000501

REACTIONS (10)
  - BACK PAIN [None]
  - BLOOD CHOLESTEROL INCREASED [None]
  - COMPRESSION FRACTURE [None]
  - DIZZINESS [None]
  - HAEMATOCHEZIA [None]
  - HEADACHE [None]
  - HYPERHIDROSIS [None]
  - LUMBAR RADICULOPATHY [None]
  - MYOCARDIAL INFARCTION [None]
  - NAUSEA [None]
